FAERS Safety Report 5781590-3 (Version None)
Quarter: 2008Q2

REPORT INFORMATION
  Report Type: 
  Country: None (occurrence: None)
  Receive Date: 20080623
  Receipt Date: 20080609
  Transmission Date: 20081010
  Serious: Yes (Hospitalization)
  Sender: FDA-Public Use
  Company Number: TH-ELI_LILLY_AND_COMPANY-TH200806001955

PATIENT
  Age: 90 Year
  Sex: Female

DRUGS (3)
  1. ZYPREXA [Suspect]
     Indication: DELIRIUM
     Dosage: 15 MG, UNK
     Route: 048
     Dates: start: 20080605
  2. VISTARIL [Concomitant]
  3. REMERON [Concomitant]

REACTIONS (1)
  - RESPIRATORY DEPRESSION [None]
